FAERS Safety Report 10557500 (Version 1)
Quarter: 2014Q4

REPORT INFORMATION
  Report Type: Spontaneous
  Country: CA (occurrence: CA)
  Receive Date: 20141031
  Receipt Date: 20141031
  Transmission Date: 20150529
  Serious: Yes (Hospitalization)
  Sender: FDA-Public Use
  Company Number: CA-ACTELION-A-US2014-107118

PATIENT
  Age: 44 Year
  Sex: Female

DRUGS (7)
  1. TAPAZOLE [Concomitant]
     Active Substance: METHIMAZOLE
  2. PANTOLOC [Concomitant]
     Active Substance: PANTOPRAZOLE SODIUM
  3. REVATIO [Concomitant]
     Active Substance: SILDENAFIL CITRATE
  4. METOPROLOL [Concomitant]
     Active Substance: METOPROLOL
  5. CARIPUL [Suspect]
     Active Substance: EPOPROSTENOL
     Indication: PULMONARY ARTERIAL HYPERTENSION
     Dosage: 60000 NG/ML, UNK
     Route: 042
     Dates: start: 20140219
  6. WARFARIN [Concomitant]
     Active Substance: WARFARIN
  7. MIDODRINE [Concomitant]
     Active Substance: MIDODRINE

REACTIONS (2)
  - Thyroidectomy [Not Recovered/Not Resolved]
  - Thyroid cancer [Not Recovered/Not Resolved]
